APPROVED DRUG PRODUCT: CHOLAC
Active Ingredient: LACTULOSE
Strength: 10GM/15ML
Dosage Form/Route: SOLUTION;ORAL, RECTAL
Application: A071331 | Product #001
Applicant: ALRA LABORATORIES INC
Approved: Jul 26, 1988 | RLD: No | RS: No | Type: DISCN